FAERS Safety Report 23377580 (Version 4)
Quarter: 2024Q1

REPORT INFORMATION
  Report Type: Report from Study
  Country: DE (occurrence: DE)
  Receive Date: 20240108
  Receipt Date: 20240223
  Transmission Date: 20240410
  Serious: Yes (Other)
  Sender: FDA-Public Use
  Company Number: DE-002147023-NVSC2024DE001888

PATIENT
  Sex: Female
  Weight: 65.4 kg

DRUGS (10)
  1. KISQALI [Suspect]
     Active Substance: RIBOCICLIB
     Indication: Hormone receptor positive HER2 negative breast cancer
     Dosage: 600 MG, QD, (SCHEMA 21 DAYS INTAKE, 7 DAYS PAUSE)
     Route: 048
     Dates: start: 20200330, end: 20200707
  2. KISQALI [Suspect]
     Active Substance: RIBOCICLIB
     Dosage: 600 MG, QD, (SCHEMA 21 DAYS INTAKE, 7 DAYS PAUSE)
     Route: 048
     Dates: start: 20200722, end: 20230519
  3. KISQALI [Suspect]
     Active Substance: RIBOCICLIB
     Dosage: 600 MG, QD, (SCHEMA 21 DAYS INTAKE, 7 DAYS PAUSE)
     Route: 048
     Dates: start: 20230612, end: 20231220
  4. FULVESTRANT [Suspect]
     Active Substance: FULVESTRANT
     Indication: Hormone receptor positive HER2 negative breast cancer
     Dosage: 500 MG, Q2W (DAILY DOSE)
     Route: 030
     Dates: start: 20200330, end: 20200415
  5. FULVESTRANT [Suspect]
     Active Substance: FULVESTRANT
     Dosage: 500 MG, Q4W (DAILY DOSE)
     Route: 030
     Dates: start: 20200416
  6. GONADORELIN [Concomitant]
     Active Substance: GONADORELIN
     Indication: Hormone receptor positive HER2 negative breast cancer
     Dosage: 3.6 MG, Q4W (DAILY DOSE)
     Route: 058
     Dates: start: 20200330, end: 20200429
  7. GONADORELIN [Concomitant]
     Active Substance: GONADORELIN
     Dosage: 10.8 MG, Q3MO (DAILY DOSE)
     Route: 058
     Dates: start: 20200527, end: 20201126
  8. GONADORELIN [Concomitant]
     Active Substance: GONADORELIN
     Dosage: 3.6 MG, Q4W (DAILY DOSE)
     Route: 058
     Dates: start: 20211110, end: 20211208
  9. GONADORELIN [Concomitant]
     Active Substance: GONADORELIN
     Dosage: 3.6 MG, Q4W (DAILY DOSE)
     Route: 058
     Dates: start: 20221123, end: 20221220
  10. GONADORELIN [Concomitant]
     Active Substance: GONADORELIN
     Dosage: 10.8 MG, Q3MO (DAILY DOSE)
     Route: 058
     Dates: start: 20221221

REACTIONS (2)
  - Lung disorder [Recovering/Resolving]
  - Interstitial lung disease [Recovered/Resolved]

NARRATIVE: CASE EVENT DATE: 20231110
